FAERS Safety Report 19554082 (Version 4)
Quarter: 2021Q3

REPORT INFORMATION
  Report Type: Spontaneous
  Country: DE (occurrence: DE)
  Receive Date: 20210715
  Receipt Date: 20210817
  Transmission Date: 20211014
  Serious: Yes (Hospitalization, Other)
  Sender: FDA-Public Use
  Company Number: DE-IPSEN BIOPHARMACEUTICALS, INC.-2021-14001

PATIENT
  Age: 58 Year
  Sex: Male
  Weight: 134 kg

DRUGS (5)
  1. CANDECOR [Concomitant]
     Active Substance: CANDESARTAN CILEXETIL
  2. SOMATULINE AUTOGEL [Suspect]
     Active Substance: LANREOTIDE ACETATE
     Indication: NEUROENDOCRINE TUMOUR
     Route: 065
     Dates: start: 20210305, end: 2021
  3. SOMATULINE AUTOGEL [Suspect]
     Active Substance: LANREOTIDE ACETATE
     Route: 065
     Dates: start: 2021, end: 2021
  4. SOMATULINE AUTOGEL [Suspect]
     Active Substance: LANREOTIDE ACETATE
     Route: 065
     Dates: start: 2021, end: 2021
  5. SOMATULINE AUTOGEL [Suspect]
     Active Substance: LANREOTIDE ACETATE
     Route: 065
     Dates: start: 20210625

REACTIONS (17)
  - Mass [Unknown]
  - Anorectal discomfort [Not Recovered/Not Resolved]
  - Frequent bowel movements [Recovering/Resolving]
  - Steatorrhoea [Unknown]
  - Off label use [Unknown]
  - Drug intolerance [Unknown]
  - Proctalgia [Not Recovered/Not Resolved]
  - Product dose omission issue [Unknown]
  - Diarrhoea [Unknown]
  - Abdominal discomfort [Unknown]
  - Skin disorder [Unknown]
  - Malignant neoplasm progression [Unknown]
  - Rectal haemorrhage [Unknown]
  - Frequent bowel movements [Unknown]
  - Dysuria [Unknown]
  - Urinary incontinence [Unknown]
  - Faeces discoloured [Unknown]

NARRATIVE: CASE EVENT DATE: 2021
